FAERS Safety Report 8819484 (Version 1)
Quarter: 2012Q4

REPORT INFORMATION
  Report Type: 
  Country: US (occurrence: US)
  Receive Date: 20121002
  Receipt Date: 20121002
  Transmission Date: 20130627
  Serious: No
  Sender: FDA-Public Use
  Company Number: US-PFIZER INC-2012241925

PATIENT
  Age: 71 Year
  Sex: Female
  Weight: 87.08 kg

DRUGS (6)
  1. CELEBREX [Suspect]
     Indication: ARTHRITIS
     Dosage: 200 mg, Daily
     Dates: start: 201209
  2. CELEBREX [Suspect]
     Indication: BACK PAIN
  3. PROMETHAZINE HCL [Suspect]
     Indication: NAUSEA
     Dosage: 25 mg, every 6 hours, as needed
  4. PROMETHAZINE HCL [Suspect]
     Dosage: 25 mg, 3x/day
  5. ALPRAZOLAM [Concomitant]
     Indication: ANXIETY
     Dosage: 0.25 mg, 3-4 times a day as needed
  6. ALBUTEROL SULFATE [Concomitant]
     Indication: CHRONIC OBSTRUCTIVE PULMONARY DISEASE
     Dosage: UNK, 2x/day

REACTIONS (2)
  - Incorrect dose administered [Unknown]
  - Urinary incontinence [Not Recovered/Not Resolved]
